FAERS Safety Report 7141321-1 (Version None)
Quarter: 2010Q4

REPORT INFORMATION
  Report Type: 
  Country: None (occurrence: None)
  Receive Date: 20101203
  Receipt Date: 20101203
  Transmission Date: 20110411
  Serious: Yes (Hospitalization)
  Sender: FDA-Public Use
  Company Number: None

PATIENT
  Sex: Female
  Weight: 54.55 kg

DRUGS (2)
  1. TAXOL [Suspect]
     Dosage: 282 MG
     Dates: end: 20101004
  2. CISPLATIN [Suspect]
     Dosage: 81 MG
     Dates: end: 20101004

REACTIONS (3)
  - COLOSTOMY [None]
  - FEMALE GENITAL TRACT FISTULA [None]
  - URETHRAL OBSTRUCTION [None]
